FAERS Safety Report 8234626-4 (Version None)
Quarter: 2012Q1

REPORT INFORMATION
  Report Type: 
  Country: None (occurrence: None)
  Receive Date: 20120326
  Receipt Date: 20120319
  Transmission Date: 20120608
  Serious: Yes (Other)
  Sender: FDA-Public Use
  Company Number: IR-PFIZER INC-2012072192

PATIENT
  Age: 17 Year
  Sex: Female

DRUGS (1)
  1. HALOPERIDOL [Suspect]
     Dosage: UNK

REACTIONS (2)
  - JOINT DISLOCATION [None]
  - SUICIDE ATTEMPT [None]
